FAERS Safety Report 6198215-8 (Version None)
Quarter: 2009Q2

REPORT INFORMATION
  Report Type: 
  Country: None (occurrence: None)
  Receive Date: 20090521
  Receipt Date: 20090518
  Transmission Date: 20091009
  Serious: Yes (Other)
  Sender: FDA-Public Use
  Company Number: ES-ROXANE LABORATORIES, INC.-2009-RO-00504RO

PATIENT
  Age: 52 Year
  Sex: Male

DRUGS (6)
  1. METHOTREXATE [Suspect]
     Indication: ARTHRALGIA
     Dates: start: 20021001, end: 20030701
  2. OMEPRAZOLE [Suspect]
     Indication: ANKYLOSING SPONDYLITIS
  3. PREDNISOLONE [Suspect]
     Indication: ARTHRALGIA
     Dates: start: 20021001
  4. IRON [Concomitant]
     Indication: IRON DEFICIENCY ANAEMIA
     Route: 048
  5. IRON [Concomitant]
     Route: 030
     Dates: start: 20040401, end: 20041201
  6. PROTON PUMP INHIBITORS [Concomitant]
     Indication: IRON DEFICIENCY ANAEMIA

REACTIONS (4)
  - DERMATITIS HERPETIFORMIS [None]
  - INTESTINAL VILLI ATROPHY [None]
  - IRON DEFICIENCY ANAEMIA [None]
  - MALABSORPTION [None]
